FAERS Safety Report 6317254-7 (Version None)
Quarter: 2009Q3

REPORT INFORMATION
  Report Type: 
  Country: None (occurrence: None)
  Receive Date: 20090819
  Receipt Date: 20090812
  Transmission Date: 20100115
  Serious: Yes (Death)
  Sender: FDA-Public Use
  Company Number: 352549

PATIENT

DRUGS (5)
  1. FENTANYL [Suspect]
     Indication: ANAESTHESIA PROCEDURE
  2. MIDAZOLAM HYDROCHLORIDE [Suspect]
     Indication: ANAESTHESIA PROCEDURE
  3. SUCCINYLCHOLINE CHLORIDE [Suspect]
     Indication: ANAESTHESIA PROCEDURE
  4. VECURONIUM BROMIDE [Suspect]
     Indication: ANAESTHESIA PROCEDURE
  5. PROPOFOL [Suspect]
     Indication: ANAESTHESIA PROCEDURE

REACTIONS (3)
  - ANAPHYLACTIC REACTION [None]
  - PULMONARY CONGESTION [None]
  - PULMONARY OEDEMA [None]
